FAERS Safety Report 13358108 (Version 2)
Quarter: 2017Q3

REPORT INFORMATION
  Report Type: Spontaneous
  Country: FR (occurrence: FR)
  Receive Date: 20170322
  Receipt Date: 20170717
  Transmission Date: 20171127
  Serious: Yes (Disabling, Other)
  Sender: FDA-Public Use
  Company Number: FR-ASTELLAS-2017US010081

PATIENT
  Age: 52 Year
  Sex: Female

DRUGS (4)
  1. VESICARE [Suspect]
     Active Substance: SOLIFENACIN SUCCINATE
     Indication: URINARY INCONTINENCE
     Route: 065
  2. TOVIAZ [Suspect]
     Active Substance: FESOTERODINE FUMARATE
     Indication: PRODUCT USED FOR UNKNOWN INDICATION
     Route: 065
  3. VESICARE [Suspect]
     Active Substance: SOLIFENACIN SUCCINATE
     Indication: HYPERTONIC BLADDER
     Dosage: 10 MG (1DF), ONCE DAILY (IN THE MORNING)
     Route: 065
     Dates: start: 201702, end: 20170306
  4. TOVIAZ [Suspect]
     Active Substance: FESOTERODINE FUMARATE
     Route: 065

REACTIONS (14)
  - Dry throat [Recovered/Resolved]
  - Oedema peripheral [Not Recovered/Not Resolved]
  - Headache [Recovered/Resolved]
  - Dry mouth [Recovered/Resolved]
  - Dizziness [Unknown]
  - Paraesthesia [Recovered/Resolved]
  - Musculoskeletal disorder [Recovered/Resolved]
  - Pain [Recovered/Resolved]
  - Insomnia [Not Recovered/Not Resolved]
  - Abdominal pain upper [Not Recovered/Not Resolved]
  - Fatigue [Not Recovered/Not Resolved]
  - Back pain [Recovered/Resolved]
  - Diarrhoea [Unknown]
  - Joint swelling [Recovered/Resolved]

NARRATIVE: CASE EVENT DATE: 2017
